FAERS Safety Report 8592480 (Version 3)
Quarter: 2014Q1

REPORT INFORMATION
  Report Type: Spontaneous
  Country: US (occurrence: US)
  Receive Date: 20120601
  Receipt Date: 20140326
  Transmission Date: 20141002
  Serious: Yes (Other)
  Sender: FDA-Public Use
  Company Number: US-ASTRAZENECA-2011SE36401

PATIENT
  Age: 68 Year
  Sex: Female
  Weight: 92.1 kg

DRUGS (11)
  1. ATACAND HCT [Suspect]
     Indication: HYPERTENSION
     Dosage: 32/12.5 MG DAILY
     Route: 048
     Dates: start: 2004
  2. ATACAND HCT [Suspect]
     Indication: FLUID RETENTION
     Dosage: 32/12.5 MG DAILY
     Route: 048
     Dates: start: 2004
  3. ATACAND HCT [Suspect]
     Indication: HYPERTENSION
     Dosage: 32/12.5 MG DAILY, HALF TABLET
     Route: 048
     Dates: start: 2004
  4. ATACAND HCT [Suspect]
     Indication: FLUID RETENTION
     Dosage: 32/12.5 MG DAILY, HALF TABLET
     Route: 048
     Dates: start: 2004
  5. TOPROL XL [Suspect]
     Route: 048
  6. CRESTOR [Suspect]
     Indication: BLOOD CHOLESTEROL INCREASED
     Route: 048
     Dates: start: 2004, end: 201401
  7. LYRICA [Suspect]
     Indication: FIBROMYALGIA
     Dates: start: 2011
  8. EFFEXOR XR [Concomitant]
     Indication: ANXIETY
     Dates: start: 2012
  9. EFFEXOR XR [Concomitant]
     Indication: DEPRESSION
     Dates: start: 2012
  10. EFFEXOR XR [Concomitant]
     Indication: ANXIETY
     Dates: start: 2012
  11. EFFEXOR XR [Concomitant]
     Indication: DEPRESSION
     Dates: start: 2012

REACTIONS (20)
  - Fall [Unknown]
  - Spinal fracture [Recovered/Resolved with Sequelae]
  - Lumbar vertebral fracture [Recovered/Resolved with Sequelae]
  - Cataract [Unknown]
  - Chills [Unknown]
  - Cold sweat [Unknown]
  - Hypotension [Unknown]
  - Nausea [Recovered/Resolved]
  - Eye disorder [Unknown]
  - Ophthalmic herpes zoster [Recovered/Resolved with Sequelae]
  - Pain [Not Recovered/Not Resolved]
  - Genital rash [Recovered/Resolved]
  - Vomiting [Recovered/Resolved]
  - Spinal disorder [Not Recovered/Not Resolved]
  - Body height decreased [Not Recovered/Not Resolved]
  - Fibromyalgia [Not Recovered/Not Resolved]
  - Anaemia [Unknown]
  - Cough [Unknown]
  - Dizziness [Unknown]
  - Drug dose omission [Unknown]
